FAERS Safety Report 23178317 (Version 1)
Quarter: 2023Q4

REPORT INFORMATION
  Report Type: Spontaneous
  Country: NL (occurrence: NL)
  Receive Date: 20231113
  Receipt Date: 20231113
  Transmission Date: 20240109
  Serious: Yes (Hospitalization)
  Sender: FDA-Public Use
  Company Number: None

PATIENT
  Age: 33 Year
  Sex: Male
  Weight: 50 kg

DRUGS (4)
  1. CLOZAPINE [Suspect]
     Active Substance: CLOZAPINE
     Indication: Schizophrenia
     Dosage: 100 MILLIGRAM, QD (1/DAY 1 PIECE FOR NIGHT)
     Route: 065
     Dates: start: 20231004
  2. CLOZAPINE [Suspect]
     Active Substance: CLOZAPINE
     Indication: Psychotic disorder
     Dosage: 75 MILLIGRAM, QD (1/DAY 1 PIECE FOR THE NIGHT)
     Route: 065
  3. CLOZAPINE [Suspect]
     Active Substance: CLOZAPINE
     Dosage: 50 MILLIGRAM, QD (1/PER DAY 1 PIECE FOR NIGHT)
     Route: 065
  4. CLOZAPINE [Suspect]
     Active Substance: CLOZAPINE
     Dosage: 25 MILLIGRAM, QD(1X PER DAY 1 PIECE FOR THE NIGHT)
     Route: 065

REACTIONS (6)
  - Drooling [Recovering/Resolving]
  - Restlessness [Recovering/Resolving]
  - Confusional state [Recovering/Resolving]
  - Pyrexia [Recovered/Resolved]
  - Salivary hypersecretion [Recovering/Resolving]
  - Urinary incontinence [Recovered/Resolved]
